FAERS Safety Report 25652410 (Version 1)
Quarter: 2025Q3

REPORT INFORMATION
  Report Type: Spontaneous
  Country: US (occurrence: US)
  Receive Date: 20250807
  Receipt Date: 20250807
  Transmission Date: 20251020
  Serious: Yes (Hospitalization, Disabling)
  Sender: ACCORD
  Company Number: US-Accord-498552

PATIENT
  Age: 48 Year
  Sex: Male

DRUGS (3)
  1. CARBIDOPA\LEVODOPA [Suspect]
     Active Substance: CARBIDOPA\LEVODOPA
     Indication: Parkinson^s disease
     Dosage: HE TAKES UP TO 20 DOSES OF 25 MG-250 MG PILLS FOR A TOTAL OF +GT;5G LEVODOPA DAILY -PILLS
  2. FENTANYL [Concomitant]
     Active Substance: FENTANYL
  3. CARBIDOPA\LEVODOPA [Suspect]
     Active Substance: CARBIDOPA\LEVODOPA
     Indication: Tremor
     Dosage: HE TAKES UP TO 20 DOSES OF 25 MG-250 MG PILLS FOR A TOTAL OF +GT;5G LEVODOPA DAILY -PILLS

REACTIONS (3)
  - Dopamine dysregulation syndrome [Unknown]
  - Intentional product misuse [Unknown]
  - Overdose [Unknown]
